FAERS Safety Report 4442964-6 (Version None)
Quarter: 2004Q3

REPORT INFORMATION
  Report Type: 
  Country: None (occurrence: None)
  Receive Date: 20040907
  Receipt Date: 20040907
  Transmission Date: 20050211
  Serious: Yes (Hospitalization)
  Sender: FDA-Public Use
  Company Number: None

PATIENT
  Age: 64 Year
  Sex: Male
  Weight: 63.5036 kg

DRUGS (6)
  1. LEVAQUIN [Suspect]
     Indication: CONVULSION
     Dates: start: 20040902, end: 20040903
  2. LIPITOR [Concomitant]
  3. NORVASC [Concomitant]
  4. COUMADIN [Concomitant]
  5. LABETALOL HCL [Concomitant]
  6. ZOLOFT [Concomitant]

REACTIONS (2)
  - GRAND MAL CONVULSION [None]
  - LOSS OF CONSCIOUSNESS [None]
